FAERS Safety Report 22588274 (Version 1)
Quarter: 2023Q2

REPORT INFORMATION
  Report Type: Spontaneous
  Country: ES (occurrence: ES)
  Receive Date: 20230612
  Receipt Date: 20230612
  Transmission Date: 20230722
  Serious: Yes (Other)
  Sender: FDA-Public Use
  Company Number: None

PATIENT
  Age: 79 Year
  Sex: Male

DRUGS (3)
  1. CLOPIDOGREL [Interacting]
     Active Substance: CLOPIDOGREL BISULFATE
     Indication: Cerebrovascular accident
     Dosage: 75 MG, Q24H (75 MG/24 HORAS)
     Route: 048
     Dates: start: 20230502
  2. ASPIRIN [Interacting]
     Active Substance: ASPIRIN
     Indication: Cerebrovascular accident
     Dosage: 100 MG, 4 DAYS
     Route: 048
     Dates: start: 20230502
  3. ENOXAPARIN [Interacting]
     Active Substance: ENOXAPARIN
     Indication: Cerebrovascular accident
     Dosage: 40 MG, Q24H
     Route: 058
     Dates: start: 20230502, end: 20230507

REACTIONS (4)
  - Haematuria [Recovering/Resolving]
  - Drug interaction [Recovering/Resolving]
  - Wrong dose [Recovered/Resolved]
  - Overdose [Recovering/Resolving]

NARRATIVE: CASE EVENT DATE: 20230506
